FAERS Safety Report 4427079-5 (Version None)
Quarter: 2004Q3

REPORT INFORMATION
  Report Type: 
  Country: None (occurrence: None)
  Receive Date: 20040726
  Receipt Date: 20031121
  Transmission Date: 20050211
  Serious: No
  Sender: FDA-Public Use
  Company Number: USA031051298

PATIENT
  Age: 45 Year
  Sex: Male

DRUGS (6)
  1. FORTEO [Suspect]
     Indication: OSTEOPOROSIS
     Dates: start: 20031001, end: 20031118
  2. CALCIUM [Concomitant]
  3. PREDNISONE [Concomitant]
  4. KLONOPIN [Concomitant]
  5. VITAMIN B12 FOR INJECTION (CYANOCOBALAMIN) [Concomitant]
  6. COLESTID [Concomitant]

REACTIONS (7)
  - ARTHRALGIA [None]
  - BLOOD POTASSIUM INCREASED [None]
  - FEELING ABNORMAL [None]
  - HYPERCALCAEMIA [None]
  - MUSCULAR WEAKNESS [None]
  - MYALGIA [None]
  - PAIN IN EXTREMITY [None]
